FAERS Safety Report 8058282-3 (Version None)
Quarter: 2012Q1

REPORT INFORMATION
  Report Type: 
  Country: None (occurrence: None)
  Receive Date: 20120120
  Receipt Date: 20120117
  Transmission Date: 20120608
  Serious: No
  Sender: FDA-Public Use
  Company Number: US-PFIZER INC-2012013375

PATIENT
  Sex: Female

DRUGS (1)
  1. COVERA-HS [Suspect]
     Dosage: 180 MG, 2X/DAY

REACTIONS (1)
  - HYPOTENSION [None]
